FAERS Safety Report 12042842 (Version 1)
Quarter: 2016Q1

REPORT INFORMATION
  Report Type: Spontaneous
  Country: US (occurrence: US)
  Receive Date: 20160208
  Receipt Date: 20160208
  Transmission Date: 20160526
  Serious: No
  Sender: FDA-Public Use
  Company Number: US-ANTARES PHARMA, INC.-2015-SPO-MX-0091

PATIENT
  Age: 17 Year
  Sex: Male

DRUGS (2)
  1. OTREXUP [Suspect]
     Active Substance: METHOTREXATE
     Indication: COLITIS ULCERATIVE
     Dosage: 25 MG/0.4ML, QWK
  2. HUMIRA [Concomitant]
     Active Substance: ADALIMUMAB
     Indication: COLITIS ULCERATIVE

REACTIONS (3)
  - Off label use [None]
  - Device issue [None]
  - Incorrect dose administered by device [Recovered/Resolved]
